FAERS Safety Report 8128729-2 (Version None)
Quarter: 2012Q1

REPORT INFORMATION
  Report Type: 
  Country: None (occurrence: None)
  Receive Date: 20120210
  Receipt Date: 20110211
  Transmission Date: 20120608
  Serious: Yes (Other)
  Sender: FDA-Public Use
  Company Number: US-BRISTOL-MYERS SQUIBB COMPANY-15546542

PATIENT
  Age: 82 Year
  Sex: Female
  Weight: 55 kg

DRUGS (11)
  1. FOLIC ACID [Concomitant]
  2. CELEBREX [Concomitant]
  3. ACTONEL [Concomitant]
  4. METHOTREXATE [Concomitant]
  5. ASPIRIN [Concomitant]
  6. CALCIUM CARBONATE [Concomitant]
  7. ORENCIA [Suspect]
     Dates: start: 20081001
  8. LIPITOR [Concomitant]
  9. MULTIPLE VITAMINS [Concomitant]
  10. CO-Q-10 PLUS [Concomitant]
  11. VITAMIN D [Concomitant]

REACTIONS (1)
  - NEUROENDOCRINE CARCINOMA OF THE SKIN [None]
